FAERS Safety Report 21512736 (Version 3)
Quarter: 2023Q1

REPORT INFORMATION
  Report Type: Report from Study
  Country: US (occurrence: US)
  Receive Date: 20221027
  Receipt Date: 20230209
  Transmission Date: 20230417
  Serious: Yes (Other)
  Sender: FDA-Public Use
  Company Number: US-ABBVIE-4175395

PATIENT
  Age: 21 Year
  Sex: Female
  Weight: 81.192 kg

DRUGS (3)
  1. HUMIRA [Suspect]
     Active Substance: ADALIMUMAB
     Indication: Crohn^s disease
     Dosage: CITRATE FREE
     Route: 058
  2. HUMIRA [Suspect]
     Active Substance: ADALIMUMAB
     Indication: Proctitis ulcerative
  3. HUMIRA [Suspect]
     Active Substance: ADALIMUMAB
     Indication: Intestinal obstruction

REACTIONS (9)
  - Stoma closure [Recovered/Resolved]
  - Constipation [Unknown]
  - Ileostomy [Recovered/Resolved]
  - Decreased appetite [Unknown]
  - Insomnia [Unknown]
  - Gastrooesophageal reflux disease [Unknown]
  - Colectomy [Recovered/Resolved]
  - Feeding disorder [Unknown]
  - Diarrhoea [Unknown]

NARRATIVE: CASE EVENT DATE: 20220201
